FAERS Safety Report 15538184 (Version 3)
Quarter: 2019Q4

REPORT INFORMATION
  Report Type: Spontaneous
  Country: RS (occurrence: RS)
  Receive Date: 20181022
  Receipt Date: 20191114
  Transmission Date: 20200122
  Serious: Yes (Other)
  Sender: FDA-Public Use
  Company Number: RS-JNJFOC-20180844281

PATIENT
  Age: 57 Year
  Sex: Male

DRUGS (4)
  1. TAMSOL [Concomitant]
  2. IMBRUVICA [Suspect]
     Active Substance: IBRUTINIB
     Dosage: REDUCED DOSE
     Route: 048
     Dates: start: 20191030
  3. IMBRUVICA [Suspect]
     Active Substance: IBRUTINIB
     Indication: CHRONIC LYMPHOCYTIC LEUKAEMIA
     Route: 048
     Dates: start: 201805, end: 20180720
  4. MONOPRIL [Concomitant]
     Active Substance: FOSINOPRIL SODIUM
     Indication: HYPERTENSION

REACTIONS (5)
  - Oral infection [Recovered/Resolved]
  - Arthralgia [Not Recovered/Not Resolved]
  - Neutropenia [Recovered/Resolved]
  - Contusion [Unknown]
  - Autoimmune haemolytic anaemia [Unknown]

NARRATIVE: CASE EVENT DATE: 20180720
